FAERS Safety Report 5205204-6 (Version None)
Quarter: 2007Q1

REPORT INFORMATION
  Report Type: 
  Country: None (occurrence: None)
  Receive Date: 20070108
  Receipt Date: 20061229
  Transmission Date: 20070707
  Serious: Yes (Other)
  Sender: FDA-Public Use
  Company Number: 2007AL000005

PATIENT
  Age: 48 Year
  Sex: Female

DRUGS (9)
  1. GABAPENTIN [Suspect]
     Indication: NEURALGIA
     Dosage: 2.7 G; QD; PO
     Route: 048
     Dates: start: 20060511
  2. AMITRIPTYLINE HCL [Concomitant]
  3. LANSOPRAZOLE [Concomitant]
  4. TAMOXIFEN CITRATE [Concomitant]
  5. DICLOFENAC SODIUM [Concomitant]
  6. PARACETAMOL [Concomitant]
  7. CODEINE SUL TAB [Concomitant]
  8. CLOTRIMAZOLE [Concomitant]
  9. TAMOXIFEN CITRATE [Concomitant]

REACTIONS (3)
  - BALANCE DISORDER [None]
  - HYPERTONIA [None]
  - LOSS OF CONTROL OF LEGS [None]
